FAERS Safety Report 8136137-3 (Version None)
Quarter: 2012Q1

REPORT INFORMATION
  Report Type: 
  Country: None (occurrence: None)
  Receive Date: 20120214
  Receipt Date: 20120211
  Transmission Date: 20120608
  Serious: No
  Sender: FDA-Public Use
  Company Number: US-PFIZER INC-2012016085

PATIENT
  Sex: Male
  Weight: 104 kg

DRUGS (2)
  1. CHANTIX [Suspect]
     Indication: SMOKING CESSATION THERAPY
     Dosage: 0.5 MG, DAILY
     Dates: start: 20120101, end: 20120101
  2. CHANTIX [Suspect]
     Dosage: UNK
     Dates: start: 20120101

REACTIONS (8)
  - LUNG DISORDER [None]
  - SOMNOLENCE [None]
  - SMOKE SENSITIVITY [None]
  - FATIGUE [None]
  - LAZINESS [None]
  - DYSPNOEA [None]
  - DYSGEUSIA [None]
  - WEIGHT INCREASED [None]
